FAERS Safety Report 13159907 (Version 3)
Quarter: 2017Q1

REPORT INFORMATION
  Report Type: Report from Study
  Country: FR (occurrence: FR)
  Receive Date: 20170127
  Receipt Date: 20170324
  Transmission Date: 20170428
  Serious: Yes (Hospitalization)
  Sender: FDA-Public Use
  Company Number: FR-BAYER-2016-196650

PATIENT
  Age: 65 Year
  Sex: Female
  Weight: 92 kg

DRUGS (14)
  1. STIVARGA [Suspect]
     Active Substance: REGORAFENIB
     Indication: COLORECTAL CANCER METASTATIC
     Dosage: 160 MG, QD (4 TABLETS 40MG)
     Dates: start: 20160926, end: 20161009
  2. LOPERAMIDE [Concomitant]
     Active Substance: LOPERAMIDE
     Dosage: 16 MG, QD
     Dates: start: 20120402, end: 20161011
  3. ALPRAZOLAM. [Concomitant]
     Active Substance: ALPRAZOLAM
     Dosage: 0.25 MG, QD
     Dates: start: 2016, end: 20161011
  4. BISOPROLOL [Concomitant]
     Active Substance: BISOPROLOL
     Dosage: 10 MG, QD
     Dates: start: 201212
  5. STIVARGA [Suspect]
     Active Substance: REGORAFENIB
     Indication: COLORECTAL CANCER METASTATIC
     Dosage: 80 MG, QD
     Dates: start: 20161024, end: 20161109
  6. DOLIPRANE [Concomitant]
     Active Substance: ACETAMINOPHEN
     Dosage: 1000 MG, QD
     Dates: start: 20120417
  7. SPASFON [Concomitant]
     Active Substance: PHLOROGLUCINOL
     Dosage: 480 MG, QD
     Dates: start: 20160524
  8. KERATINAMIN [Concomitant]
     Active Substance: UREA
     Indication: PROPHYLAXIS
     Dosage: UNK
     Dates: start: 201605
  9. DEXCHLORPHENIRAMINE [Concomitant]
     Active Substance: DEXCHLORPHENIRAMINE
     Dosage: DAILY DOSE 5 MG
     Dates: start: 20161010, end: 20161010
  10. IMOVANE [Concomitant]
     Active Substance: ZOPICLONE
     Dosage: 7.5 MG, QD
     Dates: start: 20120131, end: 20161011
  11. EUPRESSYL [Concomitant]
     Active Substance: URAPIDIL
     Dosage: 60 MG, QD
     Dates: start: 2013
  12. LEVOTHYROX [Concomitant]
     Active Substance: LEVOTHYROXINE
     Dosage: 150 ?G, QD
     Dates: start: 2011
  13. LASILIX [Concomitant]
     Active Substance: FUROSEMIDE
     Dosage: 60 MG, QD
     Dates: start: 2014
  14. LERCANIDIPINE [Concomitant]
     Active Substance: LERCANIDIPINE
     Dosage: 20 MG, QD
     Dates: start: 2016

REACTIONS (2)
  - Rash macular [Recovered/Resolved]
  - Pancreatitis [Recovered/Resolved]

NARRATIVE: CASE EVENT DATE: 20161004
